FAERS Safety Report 11429610 (Version 1)
Quarter: 2015Q3

REPORT INFORMATION
  Report Type: Spontaneous
  Country: CN (occurrence: CN)
  Receive Date: 20150828
  Receipt Date: 20150828
  Transmission Date: 20151125
  Serious: Yes (Hospitalization)
  Sender: FDA-Public Use
  Company Number: CN-JNJFOC-20150813340

PATIENT
  Age: 48 Year
  Sex: Female

DRUGS (3)
  1. DUROGESIC D-TRANS [Suspect]
     Active Substance: FENTANYL
     Indication: TUMOUR PAIN
     Dosage: 75UG/HR= 12.6MG
     Route: 062
  2. DUROGESIC D-TRANS [Suspect]
     Active Substance: FENTANYL
     Indication: TUMOUR PAIN
     Dosage: 87.5UG/HR= 14.7MG
     Route: 062
  3. DUROGESIC D-TRANS [Suspect]
     Active Substance: FENTANYL
     Indication: TUMOUR PAIN
     Dosage: 112.5UG/HR= 18.9MG
     Route: 062
     Dates: start: 20140218, end: 20140219

REACTIONS (2)
  - Somnolence [Recovering/Resolving]
  - Coma [Recovering/Resolving]

NARRATIVE: CASE EVENT DATE: 20140219
